FAERS Safety Report 24887530 (Version 1)
Quarter: 2025Q1

REPORT INFORMATION
  Report Type: Report from Study
  Country: US (occurrence: US)
  Receive Date: 20250127
  Receipt Date: 20250127
  Transmission Date: 20250409
  Serious: Yes (Hospitalization, Other)
  Sender: SANOFI AVENTIS
  Company Number: US-SA-SAC20240715000476

PATIENT
  Age: 29 Year
  Sex: Female
  Weight: 80.7 kg

DRUGS (5)
  1. ALEMTUZUMAB [Suspect]
     Active Substance: ALEMTUZUMAB
     Indication: Multiple sclerosis
     Dosage: 12 MG, QD
     Route: 041
     Dates: start: 20240708, end: 20240710
  2. VITAMIN D NOS [Concomitant]
     Active Substance: CHOLECALCIFEROL\ERGOCALCIFEROL
  3. AMITRIPTYLINE HYDROCHLORIDE [Concomitant]
     Active Substance: AMITRIPTYLINE HYDROCHLORIDE
     Indication: Neuropathy peripheral
  4. TROSPIUM [Concomitant]
     Active Substance: TROSPIUM
     Indication: Micturition urgency
  5. AMANTADINE [Concomitant]
     Active Substance: AMANTADINE
     Indication: Fatigue

REACTIONS (6)
  - Pneumonitis [Recovered/Resolved]
  - Acute pulmonary oedema [Recovered/Resolved]
  - Fibrin D dimer increased [Recovered/Resolved]
  - Lung opacity [Recovered/Resolved]
  - Hypertension [Recovered/Resolved]
  - Headache [Recovered/Resolved]

NARRATIVE: CASE EVENT DATE: 20240711
